FAERS Safety Report 18285009 (Version 2)
Quarter: 2020Q4

REPORT INFORMATION
  Report Type: Spontaneous
  Country: US (occurrence: US)
  Receive Date: 20200918
  Receipt Date: 20201118
  Transmission Date: 20210113
  Serious: No
  Sender: FDA-Public Use
  Company Number: US-THERATECHNOLOGIES INC.-2020-THE-TES-000213

PATIENT
  Sex: Male

DRUGS (1)
  1. EGRIFTA SV [Suspect]
     Active Substance: TESAMORELIN ACETATE
     Indication: PRODUCT USED FOR UNKNOWN INDICATION
     Dosage: UNK
     Route: 058

REACTIONS (3)
  - Peripheral swelling [Unknown]
  - Nausea [Recovered/Resolved]
  - Weight increased [Unknown]
